FAERS Safety Report 24347792 (Version 1)
Quarter: 2024Q3

REPORT INFORMATION
  Report Type: Spontaneous
  Country: CN (occurrence: CN)
  Receive Date: 20240922
  Receipt Date: 20240922
  Transmission Date: 20241016
  Serious: Yes (Life-Threatening, Hospitalization)
  Sender: BEIGENE
  Company Number: CN-BEIGENE-BGN-2024-014915

PATIENT

DRUGS (3)
  1. TISLELIZUMAB [Suspect]
     Active Substance: TISLELIZUMAB
     Indication: Lung neoplasm malignant
     Dosage: 200 MILLIGRAM
     Route: 041
     Dates: start: 20240804
  2. CISPLATIN [Suspect]
     Active Substance: CISPLATIN
     Indication: Lung neoplasm malignant
     Dosage: 120 MILLIGRAM
     Route: 041
     Dates: start: 20240804
  3. PACLITAXEL [Suspect]
     Active Substance: PACLITAXEL
     Indication: Lung neoplasm malignant
     Dosage: 400 MILLIGRAM
     Route: 041
     Dates: start: 20240804

REACTIONS (10)
  - Toxic epidermal necrolysis [Recovering/Resolving]
  - Infection [Recovering/Resolving]
  - Oxygen saturation decreased [Recovering/Resolving]
  - Platelet count decreased [Recovering/Resolving]
  - Mouth ulceration [Recovering/Resolving]
  - Oral pain [Recovering/Resolving]
  - Dysphagia [Recovering/Resolving]
  - Pyrexia [Recovering/Resolving]
  - Cough [Recovering/Resolving]
  - Blood albumin decreased [Unknown]

NARRATIVE: CASE EVENT DATE: 20240810
